FAERS Safety Report 6857194-8 (Version None)
Quarter: 2010Q3

REPORT INFORMATION
  Report Type: 
  Country: None (occurrence: None)
  Receive Date: 20100719
  Receipt Date: 20100222
  Transmission Date: 20110219
  Serious: No
  Sender: FDA-Public Use
  Company Number: US-KINGPHARMUSA00001-K201000200

PATIENT
  Sex: Female
  Weight: 74.83 kg

DRUGS (4)
  1. LEVOXYL [Suspect]
     Indication: HYPOTHYROIDISM
     Dosage: 50 MCG, QD
     Route: 048
     Dates: start: 20091126
  2. VITAMIN D [Concomitant]
     Dosage: 1 DF, QD
     Route: 048
  3. MULTI-VITAMINS [Concomitant]
     Dosage: 1 DF, QD
     Route: 048
  4. LOVAZA [Concomitant]
     Dosage: 1 DF, QD
     Route: 048

REACTIONS (3)
  - OEDEMA PERIPHERAL [None]
  - PAIN [None]
  - SKIN TIGHTNESS [None]
